FAERS Safety Report 4411858-4 (Version None)
Quarter: 2004Q3

REPORT INFORMATION
  Report Type: 
  Country: None (occurrence: None)
  Receive Date: 20040730
  Receipt Date: 20040628
  Transmission Date: 20050211
  Serious: No
  Sender: FDA-Public Use
  Company Number: JP-MERCK-0407USA00171

PATIENT
  Age: 55 Year
  Sex: Female

DRUGS (6)
  1. NORVASC [Concomitant]
     Indication: HYPERTENSION
     Route: 048
     Dates: start: 20000711
  2. LIPITOR [Concomitant]
     Indication: HYPERLIPIDAEMIA
     Route: 048
     Dates: start: 20001004, end: 20010613
  3. LIPITOR [Concomitant]
     Route: 048
     Dates: start: 20010614
  4. MUCOFADIN [Concomitant]
     Indication: KERATOCONJUNCTIVITIS SICCA
     Route: 047
     Dates: start: 20020408, end: 20030109
  5. HYALURONATE SODIUM [Concomitant]
     Indication: KERATOCONJUNCTIVITIS SICCA
     Route: 047
     Dates: start: 20030109
  6. COZAAR [Suspect]
     Indication: HYPERTENSION
     Route: 048
     Dates: start: 20000905

REACTIONS (3)
  - EYE OPERATION [None]
  - EYE REDNESS [None]
  - OCULAR HYPERAEMIA [None]
